FAERS Safety Report 9400182 (Version 3)
Quarter: 2013Q4

REPORT INFORMATION
  Report Type: Spontaneous
  Country: JP (occurrence: JP)
  Receive Date: 20130715
  Receipt Date: 20131029
  Transmission Date: 20140711
  Serious: Yes (Life-Threatening, Other)
  Sender: FDA-Public Use
  Company Number: JP-PFIZER INC-2013204297

PATIENT
  Age: 74 Year
  Sex: Female

DRUGS (2)
  1. METHOTREXATE SODIUM [Suspect]
     Indication: B-CELL LYMPHOMA
     Dosage: 3.5 G/M2 ON DAY1, REPEATED IN 4 CYCELS IN A 3-WEEK PERIOD
  2. CYTARABINE [Suspect]
     Indication: B-CELL LYMPHOMA
     Dosage: 1.5 G/M2 TWICE DAILY ON DAY2 AND DAY3, REPEATED IN 4 CYCLES IN A 3-WEEK PERIOD

REACTIONS (1)
  - Haematotoxicity [Unknown]
